FAERS Safety Report 25286162 (Version 1)
Quarter: 2025Q2

REPORT INFORMATION
  Report Type: Spontaneous
  Country: DE (occurrence: DE)
  Receive Date: 20250509
  Receipt Date: 20250509
  Transmission Date: 20250716
  Serious: Yes (Hospitalization, Other)
  Sender: ACCORD
  Company Number: None

PATIENT
  Age: 79 Year
  Sex: Male
  Weight: 73 kg

DRUGS (17)
  1. DOCETAXEL [Suspect]
     Active Substance: DOCETAXEL
     Indication: Prostate cancer
     Dosage: 77.6 MG, Q2WK
     Dates: start: 20241203, end: 20250207
  2. DAROLUTAMIDE [Suspect]
     Active Substance: DAROLUTAMIDE
     Indication: Prostate cancer
     Dosage: 600 MG, QD
     Dates: start: 20241112, end: 20250214
  3. TRENANTONE [Suspect]
     Active Substance: LEUPROLIDE ACETATE
     Indication: Prostate cancer
     Dosage: 11.25 MG, Q3 MON
     Dates: start: 20241101, end: 20250115
  4. CEFTRIAXONE [Concomitant]
     Active Substance: CEFTRIAXONE
  5. DIMENHYDRINATE [Concomitant]
     Active Substance: DIMENHYDRINATE
     Indication: Nausea
     Dosage: 62 MG, QD
     Dates: start: 20250217
  6. ENOXAPARIN [Concomitant]
     Active Substance: ENOXAPARIN
     Indication: Prophylaxis
     Dates: start: 20250214, end: 20250216
  7. GRANISETRON [Concomitant]
     Active Substance: GRANISETRON
     Indication: Nausea
     Dosage: 1 MG, QD
     Dates: start: 20250214, end: 20250217
  8. HYDROMORPHONE HCL [Concomitant]
     Active Substance: HYDROMORPHONE HYDROCHLORIDE
     Indication: Back pain
     Dosage: 16 MG, QD
     Dates: start: 20250214
  9. METHYLPREDNISOLONE [Concomitant]
     Active Substance: METHYLPREDNISOLONE
  10. POLYETHYLENE GLYCOLS [Concomitant]
     Active Substance: POLYETHYLENE GLYCOLS
     Indication: Constipation
     Dates: start: 20250214
  11. METAMIZOLE [Concomitant]
     Active Substance: METAMIZOLE
     Indication: Nausea
     Dates: start: 20250214, end: 20250215
  12. SODIUM PICOSULFATE [Concomitant]
     Active Substance: SODIUM PICOSULFATE
     Indication: Constipation
     Dates: start: 20250215
  13. TRENANTONE [Suspect]
     Active Substance: LEUPROLIDE ACETATE
     Indication: Prostate cancer
     Dates: start: 20250214
  14. ENOXAPARIN [Concomitant]
     Active Substance: ENOXAPARIN
     Indication: Prophylaxis
     Dates: start: 20250217
  15. DAROLUTAMIDE [Suspect]
     Active Substance: DAROLUTAMIDE
     Indication: Prostate cancer
  16. DOCETAXEL [Suspect]
     Active Substance: DOCETAXEL
     Indication: Prostate cancer
     Dates: end: 20250214
  17. METAMIZOLE [Concomitant]
     Active Substance: METAMIZOLE
     Indication: Nausea
     Dosage: 10 MG, QD
     Dates: start: 20250216, end: 20250216

REACTIONS (10)
  - General physical health deterioration [Not Recovered/Not Resolved]
  - Nausea [Not Recovered/Not Resolved]
  - Constipation [Unknown]
  - Metastases to bone [Not Recovered/Not Resolved]
  - Urinary retention [Recovered/Resolved]
  - Pelvic pain [Not Recovered/Not Resolved]
  - Pulmonary toxicity [Unknown]
  - Pneumonitis [Recovering/Resolving]
  - Lung disorder [Unknown]
  - Prostatic specific antigen increased [Unknown]

NARRATIVE: CASE EVENT DATE: 20250212
